FAERS Safety Report 21309415 (Version 1)
Quarter: 2022Q3

REPORT INFORMATION
  Report Type: Spontaneous
  Country: US (occurrence: US)
  Receive Date: 20220908
  Receipt Date: 20220908
  Transmission Date: 20221027
  Serious: No
  Sender: FDA-Public Use
  Company Number: US-BRAINTREE LABORATORIES, INC.-2022BTE00057

PATIENT
  Age: 68 Year
  Sex: Female

DRUGS (11)
  1. SUPREP BOWEL PREP [Suspect]
     Active Substance: MAGNESIUM SULFATE\POTASSIUM SULFATE\SODIUM SULFATE
     Indication: Colonoscopy
     Dosage: 2 X 6 OZ. BOTTLE, 1X
     Dates: start: 20220117, end: 20220118
  2. LISINOPRIL [Concomitant]
     Active Substance: LISINOPRIL
  3. DESIPRAMINE [Concomitant]
     Active Substance: DESIPRAMINE
  4. ESTROGEN HORMONE PATCH [Concomitant]
  5. COLMOLTRIPTAN [Concomitant]
  6. ALEVE [Concomitant]
     Active Substance: NAPROXEN SODIUM
  7. CENTRUM MULTIVITAMIN [Concomitant]
  8. VITAMIN B COMPLEX [Concomitant]
     Active Substance: CYANOCOBALAMIN\DEXPANTHENOL\NIACINAMIDE\PYRIDOXINE HYDROCHLORIDE\RIBOFLAVIN 5^-PHOSPHATE SODIUM\THIA
  9. COENZYME Q10 [Concomitant]
     Active Substance: DIETARY SUPPLEMENT\UBIDECARENONE
  10. UNSPECIFIED HAIR SKIN AND NAIL SUPPLIMENT [Concomitant]
  11. GINGER [Concomitant]
     Active Substance: GINGER

REACTIONS (2)
  - Pain of skin [Recovered/Resolved]
  - Skin burning sensation [Recovered/Resolved]

NARRATIVE: CASE EVENT DATE: 20220101
